FAERS Safety Report 23076676 (Version 3)
Quarter: 2023Q4

REPORT INFORMATION
  Report Type: Report from Study
  Country: PT (occurrence: PT)
  Receive Date: 20231017
  Receipt Date: 20231031
  Transmission Date: 20240110
  Serious: Yes (Other)
  Sender: FDA-Public Use
  Company Number: PT-ABBVIE-5452797

PATIENT
  Age: 79 Year
  Sex: Male

DRUGS (17)
  1. CARBIDOPA\LEVODOPA [Suspect]
     Active Substance: CARBIDOPA\LEVODOPA
     Indication: Parkinson^s disease
     Dosage: 20 MG + 5 MG, FREQUENCY TEXT: MORN:7.3CC;MAIN:4.3CC/H;EXTRA:1CC
     Route: 050
     Dates: start: 2023, end: 20230921
  2. CARBIDOPA\LEVODOPA [Suspect]
     Active Substance: CARBIDOPA\LEVODOPA
     Dosage: 20 MG + 5 MG (GASTRIC), FREQUENCY TEXT: MORN:16CC;MAIN:5.6CC/H;EXTRA:5CC
     Route: 050
     Dates: start: 20230921
  3. CARBIDOPA\LEVODOPA [Suspect]
     Active Substance: CARBIDOPA\LEVODOPA
     Dosage: 20 MG + 5 MG, LAST ADMIN 2023, FREQUENCY TEXT: MORN:16CC;MAIN:5.6CC/H;EXTRA:5CC
     Route: 050
     Dates: start: 20230621
  4. NEUROBION [Concomitant]
     Active Substance: CYANOCOBALAMIN\PYRIDOXINE\THIAMINE
     Indication: Product used for unknown indication
     Dosage: 1 TABLET, START DATE TEXT: BEFORE DUODOPA
  5. FLUOXETINE [Concomitant]
     Active Substance: FLUOXETINE HYDROCHLORIDE
     Indication: Product used for unknown indication
     Dosage: FORM STRENGTH 20 MG, FREQUENCY TEXT: AT BREAKFAST, EVERY OTHER DAY?START DATE TEXT: BEFORE DUODOPA
  6. MEMANTINE [Concomitant]
     Active Substance: MEMANTINE
     Indication: Product used for unknown indication
     Dosage: 2 TABLET, FREQUENCY TEXT: AT BREAKFAST AND AT DINNER ?START DATE TEXT: BEFORE DUODOPA
  7. SIMVASTATINE A [Concomitant]
     Indication: Product used for unknown indication
     Dosage: 1 TABLET, FREQUENCY TEXT: AT BEDTIME ?START DATE TEXT: BEFORE DUODOPA , ?FORM STRENGTH 40 MG
  8. EDOXABAN TOSYLATE [Concomitant]
     Active Substance: EDOXABAN TOSYLATE
     Indication: Product used for unknown indication
     Dosage: 1 TABLET, FORM STRENGTH 60 MG, START DATE TEXT: BEFORE DUODOPA
  9. AMANTADINE HYDROCHLORIDE [Concomitant]
     Active Substance: AMANTADINE HYDROCHLORIDE
     Indication: Product used for unknown indication
     Dosage: FORM STRENGTH 100 MG, 1 TABLET, FREQUENCY TEXT: 1 PATCH DAILY ?START DATE TEXT: BEFORE DUODOPA , ...
  10. RIVOTRIL [Concomitant]
     Active Substance: CLONAZEPAM
     Indication: Product used for unknown indication
     Dosage: 1 TABLET, FORM STRENGTH 0.5 MG, FREQUENCY TEXT: AT BEDTIME ? START DATE TEXT: BEFORE DUODOPA
  11. RAMIPRIL [Concomitant]
     Active Substance: RAMIPRIL
     Indication: Product used for unknown indication
     Dosage: 1 TABLET, FORM STRENGTH 5 MG, FREQUENCY TEXT: AT BREAKFAST ? START DATE TEXT: BEFORE DUODOPA
  12. FOLIC ACID [Concomitant]
     Active Substance: FOLIC ACID
     Indication: Product used for unknown indication
     Dosage: FORM STRENGTH 5 MG ?FREQUENCY TEXT: 1 TABLET AT LUNCH ON SATURDAYS PLUS SUNDAYS ?START DATE TEXT:...
  13. RIVASTIGMINE [Concomitant]
     Active Substance: RIVASTIGMINE
     Indication: Product used for unknown indication
     Dosage: 13,3 MG/24H, FORM STRENGTH 10 MG? START DATE TEXT: BEFORE DUODOPA
     Route: 062
  14. SINEMET CR [Concomitant]
     Active Substance: CARBIDOPA\LEVODOPA
     Indication: Product used for unknown indication
     Dosage: 1 TABLET, 200/50, FREQUENCY TEXT: AT BEDTIME ?START DATE TEXT: BEFORE DUODOPA
  15. DUTASTERIDE\TAMSULOSIN [Concomitant]
     Active Substance: DUTASTERIDE\TAMSULOSIN
     Indication: Product used for unknown indication
     Dosage: 5 MG + 4 MG, FREQUENCY TEXT: 1 TABLET AT LUNCH ? START DATE TEXT: BEFORE DUODOPA
  16. MIRABEGRON [Concomitant]
     Active Substance: MIRABEGRON
     Indication: Product used for unknown indication
     Dosage: 1 CAPSULE, FORM STRENGTH 25 MG, ?FREQUENCY TEXT: AT BREAKFAST  ?START DATE TEXT: BEFORE DUODOPA
  17. PANTOPRAZOLE [Concomitant]
     Active Substance: PANTOPRAZOLE
     Indication: Product used for unknown indication
     Dosage: 1 TABLET, - FREQUENCY TEXT: AT FASTING?START DATE TEXT: BEFORE DUODOPA , ?FORM STRENGTH 20 MG

REACTIONS (3)
  - Bradycardia [Recovered/Resolved]
  - Fatigue [Recovered/Resolved]
  - Abscess jaw [Recovered/Resolved]

NARRATIVE: CASE EVENT DATE: 20231012
